FAERS Safety Report 6807788-0 (Version None)
Quarter: 2010Q2

REPORT INFORMATION
  Report Type: 
  Country: None (occurrence: None)
  Receive Date: 20100629
  Receipt Date: 20090114
  Transmission Date: 20101027
  Serious: No
  Sender: FDA-Public Use
  Company Number: US-PFIZER INC-2009157981

PATIENT
  Sex: Female
  Weight: 72.6 kg

DRUGS (4)
  1. XANAX [Suspect]
     Indication: POST-TRAUMATIC STRESS DISORDER
     Dosage: 2 MG, 2X/DAY
     Route: 048
     Dates: start: 19950101
  2. PROZAC [Concomitant]
  3. WELLBUTRIN [Concomitant]
  4. TRAZODONE HYDROCHLORIDE [Concomitant]

REACTIONS (6)
  - FEAR [None]
  - HEADACHE [None]
  - HYPERVIGILANCE [None]
  - INSOMNIA [None]
  - PANIC ATTACK [None]
  - TREMOR [None]
